FAERS Safety Report 12889019 (Version 4)
Quarter: 2017Q1

REPORT INFORMATION
  Report Type: Spontaneous
  Country: CH (occurrence: CH)
  Receive Date: 20161027
  Receipt Date: 20170104
  Transmission Date: 20170428
  Serious: Yes (Other)
  Sender: FDA-Public Use
  Company Number: PHHY2016CH144864

PATIENT
  Age: 66 Year
  Sex: Female

DRUGS (7)
  1. SOFOSBUVIR [Concomitant]
     Active Substance: SOFOSBUVIR
     Indication: HEPATITIS C
     Dosage: 400 MG, QOD
     Route: 065
  2. DACLATASVIR. [Interacting]
     Active Substance: DACLATASVIR
     Indication: HEPATITIS B
     Dosage: 60 MG, QD
     Route: 065
  3. DACLATASVIR. [Interacting]
     Active Substance: DACLATASVIR
     Indication: IMMUNOSUPPRESSANT DRUG THERAPY
  4. ADEFOVIR [Concomitant]
     Active Substance: ADEFOVIR
     Indication: HEPATITIS B
     Route: 065
  5. CICLOSPORIN [Suspect]
     Active Substance: CYCLOSPORINE
     Indication: IMMUNOSUPPRESSANT DRUG THERAPY
     Route: 065
  6. LAMIVUDINE. [Concomitant]
     Active Substance: LAMIVUDINE
     Indication: HEPATITIS B
     Dosage: UNK
     Route: 065
  7. CICLOSPORIN [Interacting]
     Active Substance: CYCLOSPORINE
     Indication: LIVER TRANSPLANT

REACTIONS (4)
  - Drug level increased [Recovered/Resolved]
  - Drug interaction [Recovered/Resolved]
  - Creatinine renal clearance decreased [Unknown]
  - Toxicity to various agents [Unknown]
